FAERS Safety Report 10181567 (Version 1)
Quarter: 2014Q2

REPORT INFORMATION
  Report Type: Spontaneous
  Country: US (occurrence: US)
  Receive Date: 20140519
  Receipt Date: 20140519
  Transmission Date: 20141212
  Serious: Yes (Other)
  Sender: FDA-Public Use
  Company Number: US-PFIZER INC-2014131939

PATIENT
  Sex: Female

DRUGS (5)
  1. LIPITOR [Suspect]
     Dosage: UNK
  2. CARDIZEM [Suspect]
     Dosage: UNK
     Dates: start: 2013
  3. ZOCOR [Suspect]
     Dosage: UNK
  4. LANOXIN [Suspect]
     Dosage: 0.25 MG, UNK
     Dates: start: 2013
  5. PRADAXA [Suspect]
     Dosage: UNK
     Dates: start: 2013

REACTIONS (5)
  - Cardiac disorder [Unknown]
  - Diabetes mellitus [Unknown]
  - Atrial fibrillation [Unknown]
  - Groin pain [Unknown]
  - Nasopharyngitis [Unknown]
